FAERS Safety Report 11441077 (Version 1)
Quarter: 2015Q3

REPORT INFORMATION
  Report Type: Spontaneous
  Country: US (occurrence: US)
  Receive Date: 20150821
  Receipt Date: 20150821
  Transmission Date: 20151125
  Serious: No
  Sender: FDA-Public Use
  Company Number: US-ELI_LILLY_AND_COMPANY-US200802005993

PATIENT
  Age: 45 Year
  Sex: Female

DRUGS (3)
  1. CYMBALTA [Suspect]
     Active Substance: DULOXETINE HYDROCHLORIDE
     Dosage: 60 MG, UNK
     Dates: start: 200711, end: 200801
  2. OXYCODONE [Concomitant]
     Active Substance: OXYCODONE
  3. XANAX [Concomitant]
     Active Substance: ALPRAZOLAM

REACTIONS (2)
  - Drug withdrawal syndrome [Unknown]
  - Tremor [Unknown]

NARRATIVE: CASE EVENT DATE: 20080225
